FAERS Safety Report 18901117 (Version 2)
Quarter: 2021Q1

REPORT INFORMATION
  Report Type: Report from Study
  Country: US (occurrence: US)
  Receive Date: 20210216
  Receipt Date: 20210223
  Transmission Date: 20210420
  Serious: No
  Sender: FDA-Public Use
  Company Number: US-EXELIXIS-CABO-21037490

PATIENT
  Sex: Male

DRUGS (1)
  1. CABOMETYX [Suspect]
     Active Substance: CABOZANTINIB S-MALATE
     Indication: HEPATOCELLULAR CARCINOMA
     Dosage: 20 MG, QD
     Route: 048
     Dates: start: 20210129, end: 20210207

REACTIONS (4)
  - Insomnia [Unknown]
  - Fatigue [Unknown]
  - Gait disturbance [Unknown]
  - Decreased appetite [Unknown]
